FAERS Safety Report 9891785 (Version 2)
Quarter: 2014Q1

REPORT INFORMATION
  Report Type: Report from Study
  Country: US (occurrence: US)
  Receive Date: 20140212
  Receipt Date: 20140218
  Transmission Date: 20141002
  Serious: Yes (Other)
  Sender: FDA-Public Use
  Company Number: US-BAXTER-2014BAX006960

PATIENT
  Age: 70 Year
  Sex: Female
  Weight: 47.6 kg

DRUGS (1)
  1. GAMMAGARD LIQUID [Suspect]
     Indication: SELECTIVE IGG SUBCLASS DEFICIENCY
     Route: 058
     Dates: start: 20131024

REACTIONS (1)
  - Pneumonia [Recovered/Resolved]
